FAERS Safety Report 19955963 (Version 1)
Quarter: 2021Q4

REPORT INFORMATION
  Report Type: Spontaneous
  Country: MX (occurrence: MX)
  Receive Date: 20211014
  Receipt Date: 20211014
  Transmission Date: 20220303
  Serious: Yes (Life-Threatening, Hospitalization, Other)
  Sender: FDA-Public Use
  Company Number: 2021A767695

PATIENT
  Age: 2412 Week
  Sex: Female
  Weight: 96 kg

DRUGS (6)
  1. DAPAGLIFLOZIN [Suspect]
     Active Substance: DAPAGLIFLOZIN
     Indication: Diabetes mellitus
     Route: 048
     Dates: start: 20210606, end: 20210806
  2. SOLIQUA 100/33 [Concomitant]
     Active Substance: INSULIN GLARGINE\LIXISENATIDE
     Dosage: EVERY 24 HOURS
     Route: 065
  3. BIOTIN [Concomitant]
     Active Substance: BIOTIN
     Dosage: THREE TIMES A DAY
     Route: 065
  4. VITAMIN D [Concomitant]
     Active Substance: VITAMIN D NOS
     Dosage: THREE TIMES A DAY
     Route: 065
  5. MOSAPRIDE [Concomitant]
     Active Substance: MOSAPRIDE
     Dosage: THREE TIMES A DAY
     Route: 065
  6. SUCRALFATE [Concomitant]
     Active Substance: SUCRALFATE
     Dosage: THREE TIMES A DAY
     Route: 065

REACTIONS (2)
  - Diabetic ketoacidosis [Recovered/Resolved with Sequelae]
  - Diabetes mellitus inadequate control [Unknown]

NARRATIVE: CASE EVENT DATE: 20210806
